FAERS Safety Report 6135720-4 (Version None)
Quarter: 2009Q1

REPORT INFORMATION
  Report Type: 
  Country: None (occurrence: None)
  Receive Date: 20090327
  Receipt Date: 20090320
  Transmission Date: 20090719
  Serious: Yes (Other)
  Sender: FDA-Public Use
  Company Number: GB-PFIZER INC-2009187433

PATIENT

DRUGS (2)
  1. CELEBREX [Suspect]
     Indication: SCIATICA
     Route: 048
  2. CELEBREX [Suspect]
     Indication: MUSCLE STRAIN

REACTIONS (17)
  - ABDOMINAL PAIN UPPER [None]
  - DELUSION [None]
  - DIARRHOEA [None]
  - DIPLOPIA [None]
  - DIZZINESS [None]
  - DRUG INEFFECTIVE [None]
  - DYSGEUSIA [None]
  - DYSPEPSIA [None]
  - ERUCTATION [None]
  - HEADACHE [None]
  - HYPERSENSITIVITY [None]
  - MOUTH ULCERATION [None]
  - MUSCLE SPASMS [None]
  - NAUSEA [None]
  - NERVOUSNESS [None]
  - PHARYNGEAL ULCERATION [None]
  - TINNITUS [None]
